FAERS Safety Report 8247682-4 (Version None)
Quarter: 2012Q1

REPORT INFORMATION
  Report Type: 
  Country: None (occurrence: None)
  Receive Date: 20120330
  Receipt Date: 20120327
  Transmission Date: 20120608
  Serious: No
  Sender: FDA-Public Use
  Company Number: US-PFIZER INC-2012078719

PATIENT
  Sex: Female

DRUGS (3)
  1. ADVIL COLD AND SINUS [Suspect]
     Indication: NASAL CONGESTION
     Dosage: UNK, AS NEEDED
     Route: 048
     Dates: start: 20120326, end: 20120327
  2. ADVIL COLD AND SINUS [Suspect]
     Indication: OROPHARYNGEAL PAIN
  3. ADVIL COLD AND SINUS [Suspect]
     Indication: HEADACHE

REACTIONS (1)
  - DRUG INEFFECTIVE [None]
